FAERS Safety Report 7980317-4 (Version None)
Quarter: 2011Q4

REPORT INFORMATION
  Report Type: 
  Country: None (occurrence: None)
  Receive Date: 20111214
  Receipt Date: 20111205
  Transmission Date: 20120403
  Serious: Yes (Death)
  Sender: FDA-Public Use
  Company Number: PHHY2011US108219

PATIENT
  Age: 34 Year
  Sex: Female

DRUGS (9)
  1. AMPHETAMINES [Suspect]
  2. AMPHETAMINE/DIPHEMHYDRAMINE [Suspect]
  3. METOPROLOL TARTRATE [Suspect]
  4. ZOLPIDEM [Suspect]
  5. FLUOXETINE [Suspect]
  6. LORAZEPAM [Suspect]
  7. HYDROCHLOROTHIAZIDE [Suspect]
  8. SODIUM BICARBONATE [Suspect]
  9. BENZODIAZEPINES [Suspect]

REACTIONS (2)
  - COMPLETED SUICIDE [None]
  - SUICIDAL IDEATION [None]
